FAERS Safety Report 5860691-5 (Version None)
Quarter: 2008Q3

REPORT INFORMATION
  Report Type: 
  Country: None (occurrence: None)
  Receive Date: 20080827
  Receipt Date: 20080122
  Transmission Date: 20090109
  Serious: No
  Sender: FDA-Public Use
  Company Number: US-ABBOTT-07P-163-0421946-00

PATIENT
  Sex: Male
  Weight: 118.2 kg

DRUGS (8)
  1. NIASPAN [Suspect]
     Indication: HIGH DENSITY LIPOPROTEIN DECREASED
     Route: 048
     Dates: start: 20030101, end: 20071008
  2. NIASPAN [Suspect]
     Indication: LOW DENSITY LIPOPROTEIN INCREASED
  3. NIASPAN [Suspect]
     Indication: BLOOD TRIGLYCERIDES INCREASED
  4. ADVICOR [Suspect]
     Indication: HIGH DENSITY LIPOPROTEIN DECREASED
     Route: 048
     Dates: start: 20071008, end: 20071024
  5. ADVICOR [Suspect]
     Indication: LOW DENSITY LIPOPROTEIN INCREASED
  6. ADVICOR [Suspect]
     Indication: BLOOD TRIGLYCERIDES INCREASED
  7. ACETYLSALICYLIC ACID SRT [Concomitant]
     Indication: CARDIOVASCULAR EVENT PROPHYLAXIS
     Route: 048
  8. PROPACET 100 [Concomitant]
     Indication: PAIN
     Route: 048

REACTIONS (7)
  - BURNING SENSATION [None]
  - HYPOTENSION [None]
  - PALLOR [None]
  - PARAESTHESIA [None]
  - PRURITUS [None]
  - RASH [None]
  - RETCHING [None]
